FAERS Safety Report 20099112 (Version 1)
Quarter: 2021Q4

REPORT INFORMATION
  Report Type: Spontaneous
  Country: None (occurrence: US)
  Receive Date: 20211122
  Receipt Date: 20211122
  Transmission Date: 20220303
  Serious: Yes (Death, Hospitalization)
  Sender: FDA-Public Use
  Company Number: US-Jacobus Pharmaceutical Company, Inc.-2122159

PATIENT
  Age: 87 Year
  Sex: Female

DRUGS (4)
  1. RUZURGI [Suspect]
     Active Substance: AMIFAMPRIDINE
     Indication: Myasthenic syndrome
     Route: 048
     Dates: start: 20210507
  2. VITAMINS [Concomitant]
     Active Substance: VITAMINS
  3. BUDESONIDE [Concomitant]
     Active Substance: BUDESONIDE
  4. VITAMIN D [Concomitant]
     Active Substance: VITAMIN D NOS

REACTIONS (4)
  - Disease progression [Fatal]
  - Dysphagia [Fatal]
  - Polyneuropathy [Not Recovered/Not Resolved]
  - Somnolence [Not Recovered/Not Resolved]
